FAERS Safety Report 10259919 (Version 1)
Quarter: 2014Q2

REPORT INFORMATION
  Report Type: Spontaneous
  Country: UA (occurrence: UA)
  Receive Date: 20140625
  Receipt Date: 20140625
  Transmission Date: 20141212
  Serious: Yes (Hospitalization)
  Sender: FDA-Public Use
  Company Number: UA-GLAXOSMITHKLINE-B1007050A

PATIENT
  Age: 4 Year
  Sex: Female
  Weight: 22 kg

DRUGS (4)
  1. ZINNAT [Suspect]
     Indication: BRONCHITIS
     Dosage: 125MG TWICE PER DAY
     Route: 065
     Dates: start: 20140104
  2. UNKNOWN DRUG [Concomitant]
     Indication: BRONCHITIS
     Dates: start: 20140103
  3. ACC [Concomitant]
     Indication: BRONCHITIS
     Dates: start: 20140103
  4. UNKNOWN DRUG [Concomitant]
     Indication: BRONCHITIS
     Dates: start: 20140103

REACTIONS (1)
  - Atypical pneumonia [Recovered/Resolved]
